FAERS Safety Report 5043154-9 (Version None)
Quarter: 2006Q2

REPORT INFORMATION
  Report Type: 
  Country: None (occurrence: None)
  Receive Date: 20060628
  Receipt Date: 20060621
  Transmission Date: 20061013
  Serious: No
  Sender: FDA-Public Use
  Company Number: E2020-00178-SPO-IT

PATIENT
  Age: 76 Year
  Sex: Female

DRUGS (4)
  1. DONEPEZIL HCL [Suspect]
     Indication: COGNITIVE DETERIORATION
     Dosage: 5 GM 1 IN 1 D ORAL
     Route: 048
     Dates: start: 20060520, end: 20060620
  2. SINEMET [Concomitant]
  3. METFORMINE HYDROCHLORIDE (METFORMIN HYDROCHLORIDE) [Concomitant]
  4. GABAPENTIN [Concomitant]

REACTIONS (1)
  - HYPERTENSIVE CRISIS [None]
